FAERS Safety Report 7171632-5 (Version None)
Quarter: 2010Q4

REPORT INFORMATION
  Report Type: 
  Country: None (occurrence: None)
  Receive Date: 20101217
  Receipt Date: 20101208
  Transmission Date: 20110411
  Serious: Yes (Hospitalization)
  Sender: FDA-Public Use
  Company Number: FR-ABBOTT-10P-056-0690311-00

PATIENT
  Sex: Male

DRUGS (12)
  1. NORVIR [Suspect]
     Indication: ACUTE HIV INFECTION
     Route: 048
     Dates: start: 20100819
  2. BECLOMETASONE, FORMOTEROL [Suspect]
     Indication: BRONCHITIS CHRONIC
     Dosage: 100/6MCG PER DOSE
     Route: 055
  3. METHYLPREDNISOLONE [Suspect]
     Indication: LUNG DISORDER
     Dosage: 140MG DAILY
     Route: 042
     Dates: start: 20100804, end: 20100806
  4. METHYLPREDNISOLONE [Suspect]
     Dosage: 120MG DAILY
     Route: 042
     Dates: start: 20100807, end: 20100809
  5. PREDNISONE [Suspect]
     Indication: LUNG DISORDER
     Dosage: 50MG DAILY
     Route: 048
     Dates: start: 20100810, end: 20100823
  6. DARUNAVIR ETHANOLATE [Suspect]
     Indication: HIV INFECTION
     Dosage: 800MG DAILY
     Route: 048
     Dates: start: 20100819
  7. TRUVADA [Suspect]
     Indication: HIV INFECTION
     Dosage: 200MG/245 MG
     Dates: start: 20100819
  8. TRUVADA [Suspect]
     Dosage: 1 DF/DAY
  9. SPIRIVA [Concomitant]
     Indication: PRODUCT USED FOR UNKNOWN INDICATION
     Dosage: 1 DOSAGE FORM DAILY
  10. ATRIPLA [Concomitant]
     Indication: PRODUCT USED FOR UNKNOWN INDICATION
     Dates: start: 20100808
  11. COTRIM [Concomitant]
     Indication: PRODUCT USED FOR UNKNOWN INDICATION
     Dosage: 1 DOSAGE FORM DAILY
     Dates: start: 20100731
  12. ZOPICLONE [Concomitant]
     Indication: PRODUCT USED FOR UNKNOWN INDICATION
     Dates: start: 20100801

REACTIONS (3)
  - CYTOLYTIC HEPATITIS [None]
  - OSTEOPOROTIC FRACTURE [None]
  - SPINAL COMPRESSION FRACTURE [None]
